FAERS Safety Report 10492412 (Version 1)
Quarter: 2014Q4

REPORT INFORMATION
  Report Type: Spontaneous
  Country: US (occurrence: US)
  Receive Date: 20141002
  Receipt Date: 20141002
  Transmission Date: 20150528
  Serious: No
  Sender: FDA-Public Use
  Company Number: US-GLAXOSMITHKLINE-A1070636A

PATIENT
  Age: 76 Year
  Sex: Male

DRUGS (3)
  1. ALBUTEROL NEBULIZER SOLUTION [Concomitant]
     Active Substance: ALBUTEROL
  2. VENTOLIN [Concomitant]
     Active Substance: ALBUTEROL SULFATE
  3. ADVAIR HFA [Suspect]
     Active Substance: FLUTICASONE PROPIONATE\SALMETEROL XINAFOATE
     Indication: CHRONIC OBSTRUCTIVE PULMONARY DISEASE
     Dosage: 1PUFF TWICE PER DAY
     Route: 055
     Dates: start: 201210

REACTIONS (6)
  - Nasopharyngitis [Recovered/Resolved]
  - Activities of daily living impaired [Not Recovered/Not Resolved]
  - Aphonia [Not Recovered/Not Resolved]
  - Dysphonia [Not Recovered/Not Resolved]
  - Dyspnoea [Not Recovered/Not Resolved]
  - Influenza [Recovered/Resolved]

NARRATIVE: CASE EVENT DATE: 201312
